FAERS Safety Report 7444808-7 (Version None)
Quarter: 2011Q2

REPORT INFORMATION
  Report Type: 
  Country: None (occurrence: None)
  Receive Date: 20110429
  Receipt Date: 20110414
  Transmission Date: 20111010
  Serious: Yes (Other)
  Sender: FDA-Public Use
  Company Number: GB-CELGENEUS-167-21880-11041965

PATIENT

DRUGS (1)
  1. REVLIMID [Suspect]
     Route: 048

REACTIONS (2)
  - SMALL CELL LUNG CANCER METASTATIC [None]
  - PROSTATIC SPECIFIC ANTIGEN INCREASED [None]
